FAERS Safety Report 18500159 (Version 2)
Quarter: 2022Q1

REPORT INFORMATION
  Report Type: Spontaneous
  Country: AU (occurrence: AU)
  Receive Date: 20201113
  Receipt Date: 20220209
  Transmission Date: 20220423
  Serious: Yes (Hospitalization, Other)
  Sender: FDA-Public Use
  Company Number: AU-MACLEODS PHARMACEUTICALS US LTD-MAC2020029075

PATIENT

DRUGS (1)
  1. TRAMADOL [Suspect]
     Active Substance: TRAMADOL
     Indication: Gout
     Dosage: 800 MILLIGRAM, QD, USE IN EXCESS OF 800 MG XR (EXTENDED RELEASE)
     Route: 065

REACTIONS (8)
  - Behaviour disorder [Recovered/Resolved]
  - Paraesthesia [Unknown]
  - Agitation [Recovered/Resolved]
  - Drug withdrawal syndrome [Recovered/Resolved]
  - Hypertension [Unknown]
  - Tachycardia [Unknown]
  - Delirium [Recovered/Resolved]
  - Incorrect dose administered [Unknown]
